FAERS Safety Report 15616822 (Version 1)
Quarter: 2018Q4

REPORT INFORMATION
  Report Type: Spontaneous
  Country: FR (occurrence: FR)
  Receive Date: 20181114
  Receipt Date: 20181114
  Transmission Date: 20190205
  Serious: Yes (Other)
  Sender: FDA-Public Use
  Company Number: FR-BAYER-2018-207009

PATIENT
  Age: 46 Year
  Sex: Female

DRUGS (2)
  1. STIVARGA [Suspect]
     Active Substance: REGORAFENIB
     Dosage: REDUCED DOSE OF 25%
  2. STIVARGA [Suspect]
     Active Substance: REGORAFENIB
     Dosage: 160 MG, QD

REACTIONS (4)
  - Palmar-plantar erythrodysaesthesia syndrome [None]
  - Asthenia [None]
  - Diarrhoea [None]
  - Disease progression [None]
